FAERS Safety Report 4802621-0 (Version None)
Quarter: 2005Q4

REPORT INFORMATION
  Report Type: 
  Country: None (occurrence: None)
  Receive Date: 20051014
  Receipt Date: 20050323
  Transmission Date: 20060501
  Serious: Yes (Hospitalization, Other)
  Sender: FDA-Public Use
  Company Number: 2005049179

PATIENT
  Age: 85 Year
  Sex: Female

DRUGS (3)
  1. NEURONTIN [Suspect]
     Indication: PAIN
     Dosage: 100 MG
     Dates: start: 20050114, end: 20050101
  2. THYROID TAB [Concomitant]
  3. ATORVASTATIN CALCIUM [Concomitant]

REACTIONS (4)
  - CONSTIPATION [None]
  - HERPES ZOSTER [None]
  - INSOMNIA [None]
  - PAIN [None]
